FAERS Safety Report 15431252 (Version 1)
Quarter: 2018Q3

REPORT INFORMATION
  Report Type: Spontaneous
  Country: US (occurrence: US)
  Receive Date: 20180926
  Receipt Date: 20180926
  Transmission Date: 20181010
  Serious: No
  Sender: FDA-Public Use
  Company Number: US-ALLERGAN-1825238US

PATIENT
  Sex: Female

DRUGS (1)
  1. ZENPEP [Suspect]
     Active Substance: PANCRELIPASE AMYLASE\PANCRELIPASE LIPASE\PANCRELIPASE PROTEASE
     Indication: PANCREATIC FAILURE
     Dosage: 40,000 USP UNITS OF LIPASE; 126,000 USP UNITS OF PROTEASE; 168,000 USP UNITS OF AMYLASE
     Route: 065

REACTIONS (3)
  - Abdominal pain [Unknown]
  - Discomfort [Unknown]
  - Flatulence [Unknown]
